FAERS Safety Report 8197293-4 (Version None)
Quarter: 2012Q1

REPORT INFORMATION
  Report Type: 
  Country: None (occurrence: None)
  Receive Date: 20120309
  Receipt Date: 20120302
  Transmission Date: 20120608
  Serious: Yes (Hospitalization)
  Sender: FDA-Public Use
  Company Number: FR-UCBSA-052628

PATIENT
  Age: 33 Year
  Sex: Female

DRUGS (5)
  1. TOPIRAMATE [Suspect]
     Dosage: DAILY DOSE:200MG
     Route: 048
     Dates: start: 20110301
  2. URBANYL [Suspect]
     Dosage: DAILY DOSE : 30MG
     Route: 048
     Dates: start: 20110301
  3. PHENOBARBITAL TAB [Suspect]
     Dosage: DAILY DOSE :200MG
     Route: 048
     Dates: start: 20110301
  4. VIMPAT [Suspect]
     Dosage: DAILY DOSE:100MG
     Route: 048
     Dates: start: 20110301
  5. LEVOTHYROXINE SODIUM [Concomitant]
     Indication: HYPOTHYROIDISM
     Dosage: DOSE: 75 TO 100 MCG DAILY
     Route: 048
     Dates: start: 20110501

REACTIONS (1)
  - HYPOGLYCAEMIA [None]
